FAERS Safety Report 10622238 (Version 2)
Quarter: 2014Q4

REPORT INFORMATION
  Report Type: Spontaneous
  Country: JP (occurrence: JP)
  Receive Date: 20141203
  Receipt Date: 20141203
  Transmission Date: 20150529
  Serious: Yes (Hospitalization)
  Sender: FDA-Public Use
  Company Number: JP-ABBVIE-12P-087-0936972-00

PATIENT
  Age: 65 Year
  Sex: Male
  Weight: 50 kg

DRUGS (10)
  1. CLOBETASOL PROPIONATE. [Concomitant]
     Active Substance: CLOBETASOL PROPIONATE
     Indication: PARONYCHIA
     Route: 065
     Dates: start: 20120329
  2. ERLOTINIB [Suspect]
     Active Substance: ERLOTINIB
     Indication: NON-SMALL CELL LUNG CANCER
     Route: 048
     Dates: start: 20120301, end: 20120412
  3. HIRUDOID [Concomitant]
     Active Substance: GLYCOSAMINOGLYCANS
     Indication: PARONYCHIA
     Route: 065
     Dates: start: 20120329
  4. DEPAKENE [Suspect]
     Active Substance: VALPROIC ACID
     Indication: CONVULSION PROPHYLAXIS
     Route: 048
  5. MINOPEN [Concomitant]
     Active Substance: MINOCYCLINE HYDROCHLORIDE
     Indication: PARONYCHIA
     Dosage: DAILY DOSE: 100MG
     Route: 065
     Dates: start: 20120329
  6. GENTAMICIN SULFATE. [Concomitant]
     Active Substance: GENTAMICIN SULFATE
     Indication: PARONYCHIA
     Route: 065
     Dates: start: 20120329
  7. DEPAKENE [Suspect]
     Active Substance: VALPROIC ACID
     Indication: NON-SMALL CELL LUNG CANCER
     Route: 048
     Dates: start: 20120305
  8. ERLOTINIB [Suspect]
     Active Substance: ERLOTINIB
     Route: 048
     Dates: start: 20120301, end: 20120412
  9. LANSOPRAZOLE. [Concomitant]
     Active Substance: LANSOPRAZOLE
     Indication: GASTRITIS PROPHYLAXIS
     Dosage: DAILY DOSE: 15MG
     Route: 048
     Dates: start: 201011
  10. BIOLACTIS [Concomitant]
     Active Substance: LACTOBACILLUS CASEI
     Indication: DIARRHOEA
     Route: 048
     Dates: start: 20110309

REACTIONS (4)
  - Blood creatine phosphokinase increased [Recovered/Resolved]
  - Gait disturbance [Recovered/Resolved]
  - Disorientation [Recovered/Resolved]
  - Nausea [Recovered/Resolved]

NARRATIVE: CASE EVENT DATE: 20120409
